FAERS Safety Report 11912219 (Version 1)
Quarter: 2016Q1

REPORT INFORMATION
  Report Type: Spontaneous
  Country: US (occurrence: US)
  Receive Date: 20160113
  Receipt Date: 20160113
  Transmission Date: 20160526
  Serious: No
  Sender: FDA-Public Use
  Company Number: US-TEVA-624370ACC

PATIENT
  Age: 42 Year
  Sex: Female
  Weight: 69.01 kg

DRUGS (1)
  1. TAKE ACTION [Suspect]
     Active Substance: LEVONORGESTREL
     Indication: POST COITAL CONTRACEPTION
     Dates: start: 20160105, end: 20160105

REACTIONS (1)
  - Faeces discoloured [Not Recovered/Not Resolved]

NARRATIVE: CASE EVENT DATE: 20160107
